FAERS Safety Report 11160021 (Version 1)
Quarter: 2015Q2

REPORT INFORMATION
  Report Type: Spontaneous
  Country: ES (occurrence: ES)
  Receive Date: 20150603
  Receipt Date: 20150603
  Transmission Date: 20150821
  Serious: Yes (Death, Hospitalization)
  Sender: FDA-Public Use
  Company Number: PHHY2015ES064862

PATIENT
  Sex: Female

DRUGS (1)
  1. VALSARTAN. [Suspect]
     Active Substance: VALSARTAN
     Indication: PRODUCT USED FOR UNKNOWN INDICATION
     Dosage: 160 MG/24/HOURS (MATERNAL DOSE)
     Route: 064

REACTIONS (12)
  - Multi-organ failure [Fatal]
  - Fungal peritonitis [Unknown]
  - Neonatal respiratory distress syndrome [Unknown]
  - Hypotension [Unknown]
  - Tricuspid valve incompetence [Unknown]
  - Renal failure [Unknown]
  - Foetal exposure during pregnancy [Unknown]
  - Distributive shock [Unknown]
  - Cardiac output decreased [Unknown]
  - Patent ductus arteriosus [Unknown]
  - Low birth weight baby [Unknown]
  - Premature baby [Unknown]
